FAERS Safety Report 10175919 (Version 1)
Quarter: 2014Q2

REPORT INFORMATION
  Report Type: Spontaneous
  Country: HR (occurrence: HR)
  Receive Date: 20140516
  Receipt Date: 20140516
  Transmission Date: 20141212
  Serious: Yes (Other)
  Sender: FDA-Public Use
  Company Number: PHHY2014HR057869

PATIENT
  Age: 60 Year
  Sex: Female

DRUGS (10)
  1. VALNORM [Suspect]
     Indication: MYOCARDIAL ISCHAEMIA
     Route: 048
     Dates: start: 20140423, end: 20140425
  2. INDAMID [Suspect]
     Indication: MYOCARDIAL ISCHAEMIA
     Route: 048
     Dates: start: 20140423, end: 20140425
  3. GLUFORMIN [Concomitant]
     Indication: TYPE 2 DIABETES MELLITUS
     Route: 048
     Dates: start: 2009
  4. GLICLADA [Concomitant]
     Indication: TYPE 2 DIABETES MELLITUS
     Route: 048
     Dates: start: 2010
  5. ULFAMID [Concomitant]
     Indication: GASTRODUODENITIS
     Route: 048
     Dates: start: 2012
  6. TULIP (ATORVASTATIN CALCIUM) [Concomitant]
     Indication: LIPID METABOLISM DISORDER
     Route: 048
     Dates: start: 2010
  7. CORYOL [Concomitant]
     Indication: MYOCARDIAL ISCHAEMIA
     Route: 048
     Dates: start: 2010
  8. ASPIRIN PROTECT [Concomitant]
     Indication: MYOCARDIAL ISCHAEMIA
     Route: 048
     Dates: start: 2010
  9. BONNA [Concomitant]
     Indication: OSTEOPOROSIS
     Route: 048
     Dates: start: 2013
  10. PLIVIT D3 [Concomitant]
     Indication: OSTEOPOROSIS
     Route: 048
     Dates: start: 2013

REACTIONS (2)
  - Eyelid oedema [Recovered/Resolved]
  - Headache [Recovered/Resolved]
